FAERS Safety Report 9350370 (Version 1)
Quarter: 2013Q2

REPORT INFORMATION
  Report Type: Report from Study
  Country: CO (occurrence: CO)
  Receive Date: 20130617
  Receipt Date: 20130617
  Transmission Date: 20140414
  Serious: Yes (Death)
  Sender: FDA-Public Use
  Company Number: CO-ROCHE-1237239

PATIENT
  Age: 68 Year
  Sex: Male

DRUGS (2)
  1. MIRCERA [Suspect]
     Indication: ANAEMIA
     Route: 058
     Dates: start: 20110829
  2. MIRCERA [Suspect]
     Indication: RENAL DISORDER

REACTIONS (1)
  - Cardio-respiratory arrest [Fatal]
